FAERS Safety Report 16138357 (Version 1)
Quarter: 2019Q1

REPORT INFORMATION
  Report Type: Spontaneous
  Country: US (occurrence: US)
  Receive Date: 20190226
  Receipt Date: 20190226
  Transmission Date: 20190418
  Serious: No
  Sender: FDA-Public Use
  Company Number: None

PATIENT
  Age: 74 Year
  Sex: Female

DRUGS (1)
  1. TADALAFIL TAB 20 MG [Suspect]
     Active Substance: TADALAFIL
     Route: 048
     Dates: start: 201802

REACTIONS (6)
  - General physical health deterioration [None]
  - Loss of personal independence in daily activities [None]
  - Condition aggravated [None]
  - Product substitution issue [None]
  - Frustration tolerance decreased [None]
  - Sluggishness [None]

NARRATIVE: CASE EVENT DATE: 20190225
